FAERS Safety Report 9153480 (Version 1)
Quarter: 2013Q1

REPORT INFORMATION
  Report Type: Spontaneous
  Country: US (occurrence: None)
  Receive Date: 20130204
  Receipt Date: 20130204
  Transmission Date: 20140127
  Serious: Yes (Other)
  Sender: FDA-Public Use
  Company Number: 1579420

PATIENT
  Age: 65 Year
  Sex: Female

DRUGS (6)
  1. CARBOPLATIN [Suspect]
     Indication: OVARIAN CANCER RECURRENT
  2. GEMCITABINE HYDROCHLORIDE [Suspect]
     Indication: OVARIAN CANCER RECURRENT
  3. OXALIPLATIN [Suspect]
     Indication: OVARIAN CANCER RECURRENT
  4. CISPLATIN [Suspect]
     Indication: OVARIAN CANCER RECURRENT
  5. PEGYLATED LIPOSOMAL DOXORUBICIN HYDROCHLORIDE [Suspect]
     Indication: OVARIAN CANCER RECURRENT
  6. BEVACIZUMAB [Suspect]
     Indication: OVARIAN CANCER RECURRENT

REACTIONS (2)
  - Hypertension [None]
  - Renal failure chronic [None]
